FAERS Safety Report 17528024 (Version 1)
Quarter: 2020Q1

REPORT INFORMATION
  Report Type: Spontaneous
  Country: FR (occurrence: FR)
  Receive Date: 20200311
  Receipt Date: 20200311
  Transmission Date: 20200409
  Serious: Yes (Life-Threatening)
  Sender: FDA-Public Use
  Company Number: FR-ASTRAZENECA-2020SE34282

PATIENT
  Age: 40 Year
  Sex: Female
  Weight: 49 kg

DRUGS (3)
  1. LOXAPAC [Suspect]
     Active Substance: LOXAPINE
     Indication: INTENTIONAL OVERDOSE
     Dosage: 5000.0MG ONCE/SINGLE ADMINISTRATION
     Route: 048
     Dates: start: 20200123, end: 20200123
  2. XEROQUEL [Suspect]
     Active Substance: QUETIAPINE FUMARATE
     Indication: INTENTIONAL OVERDOSE
     Dosage: NP
     Route: 048
     Dates: start: 20200123, end: 20200123
  3. VALIUM [Suspect]
     Active Substance: DIAZEPAM
     Indication: INTENTIONAL OVERDOSE
     Dosage: 1100.0MG ONCE/SINGLE ADMINISTRATION
     Route: 048
     Dates: start: 20200123, end: 20200123

REACTIONS (2)
  - Coma [Recovered/Resolved]
  - Poisoning deliberate [Recovered/Resolved]

NARRATIVE: CASE EVENT DATE: 20200123
